FAERS Safety Report 13694028 (Version 2)
Quarter: 2017Q3

REPORT INFORMATION
  Report Type: Spontaneous
  Country: US (occurrence: US)
  Receive Date: 20170627
  Receipt Date: 20170706
  Transmission Date: 20171127
  Serious: Yes (Other)
  Sender: FDA-Public Use
  Company Number: US-BAYER-2017-123138

PATIENT
  Age: 51 Year
  Sex: Female

DRUGS (1)
  1. MIRALAX [Suspect]
     Active Substance: POLYETHYLENE GLYCOL 3350
     Indication: GASTROINTESTINAL DISORDER
     Dosage: 2 DF, QD
     Route: 048
     Dates: start: 201701

REACTIONS (4)
  - Product contamination microbial [Unknown]
  - Inappropriate schedule of drug administration [Unknown]
  - Poor quality drug administered [Unknown]
  - Product use issue [Unknown]

NARRATIVE: CASE EVENT DATE: 201701
